FAERS Safety Report 8972311 (Version 1)
Quarter: 2012Q4

REPORT INFORMATION
  Report Type: Report from Study
  Country: BE (occurrence: BE)
  Receive Date: 20121218
  Receipt Date: 20121218
  Transmission Date: 20130627
  Serious: Yes (Hospitalization)
  Sender: FDA-Public Use
  Company Number: BE-TEVA-376367ISR

PATIENT
  Age: 76 Year
  Sex: Male
  Weight: 53.7 kg

DRUGS (9)
  1. DOXORUBICIN [Suspect]
     Indication: DIFFUSE LARGE B-CELL LYMPHOMA
     Dosage: 79.5 Milligram Daily;
     Route: 042
     Dates: start: 20110712
  2. VINCRISTINE [Suspect]
     Indication: DIFFUSE LARGE B-CELL LYMPHOMA
     Dosage: 2 Milligram Daily;
     Route: 042
     Dates: start: 20110712
  3. VINCRISTINE [Suspect]
     Dosage: 597 Milligram Daily;
     Route: 042
     Dates: start: 20110712
  4. RITUXIMAB [Suspect]
     Indication: DIFFUSE LARGE B-CELL LYMPHOMA
     Dosage: 597 Milligram Daily;
     Route: 042
     Dates: start: 20110712
  5. RITUXIMAB [Suspect]
     Dosage: 597 Milligram Daily;
     Route: 042
     Dates: start: 20110712
  6. CYCLOPHOSPHAMIDE [Suspect]
     Indication: DIFFUSE LARGE B-CELL LYMPHOMA
     Dosage: 1193 Milligram Daily;
     Route: 042
     Dates: start: 20110712
  7. G-CSF [Suspect]
     Dosage: 6 Milligram Daily;
     Route: 058
     Dates: start: 20110712
  8. PREDNISONE [Concomitant]
     Dosage: 500 Milligram Daily;
     Route: 048
     Dates: start: 20110712
  9. PREDNISONE [Concomitant]
     Dosage: 100 Milligram Daily; LAST DOSE PRIOR TO SAE 16 JULY 2011
     Route: 048

REACTIONS (1)
  - Hyponatraemia [Recovered/Resolved with Sequelae]
